FAERS Safety Report 17927768 (Version 2)
Quarter: 2020Q3

REPORT INFORMATION
  Report Type: Spontaneous
  Country: PT (occurrence: PT)
  Receive Date: 20200622
  Receipt Date: 20200703
  Transmission Date: 20201103
  Serious: Yes (Other)
  Sender: FDA-Public Use
  Company Number: PT-B.I. PHARMACEUTICALS,INC./RIDGEFIELD-2020-12-030005

PATIENT
  Age: 41 Year
  Sex: Female

DRUGS (18)
  1. RITONAVIR. [Suspect]
     Active Substance: RITONAVIR
     Indication: PRODUCT USED FOR UNKNOWN INDICATION
     Dosage: 2005?06 2006?UNK
     Route: 065
     Dates: start: 2005
  2. ABACAVIR. [Suspect]
     Active Substance: ABACAVIR
     Dosage: UNK
     Route: 065
     Dates: start: 201007
  3. SAQUINAVIR [Suspect]
     Active Substance: SAQUINAVIR
     Dosage: JUL07?08 JUL10?UNK
     Route: 065
     Dates: start: 200707, end: 2008
  4. LOPINAVIR + RITONAVIR [Suspect]
     Active Substance: LOPINAVIR\RITONAVIR
     Indication: PRODUCT USED FOR UNKNOWN INDICATION
     Dosage: 100 MG
     Route: 065
     Dates: start: 2005, end: 2005
  5. INDINAVIR SULFATE [Suspect]
     Active Substance: INDINAVIR SULFATE
     Dosage: 2005?2006 2006?UNK
     Route: 065
     Dates: start: 2005, end: 2006
  6. ZIDOVUDINE. [Suspect]
     Active Substance: ZIDOVUDINE
     Indication: ANTIRETROVIRAL THERAPY
     Dosage: 2003?2005 2005?2005
     Route: 065
     Dates: start: 2003, end: 2005
  7. EFAVIRENZ. [Suspect]
     Active Substance: EFAVIRENZ
     Indication: ANTIRETROVIRAL THERAPY
     Dosage: UNK
     Route: 065
     Dates: start: 2003
  8. LAMIVUDINE. [Suspect]
     Active Substance: LAMIVUDINE
     Indication: PRODUCT USED FOR UNKNOWN INDICATION
     Dosage: UNK
     Route: 065
     Dates: start: 2003, end: 2005
  9. VIRAMUNE [Suspect]
     Active Substance: NEVIRAPINE
     Indication: PRODUCT USED FOR UNKNOWN INDICATION
     Dosage: UNK
     Route: 065
     Dates: start: 2003, end: 2005
  10. TENOFOVIR [Suspect]
     Active Substance: TENOFOVIR
     Indication: ANTIRETROVIRAL THERAPY
     Dosage: UNK
     Route: 065
     Dates: start: 201007
  11. ABACAVIR. [Suspect]
     Active Substance: ABACAVIR
     Indication: ANTIRETROVIRAL THERAPY
     Dosage: 2005?2008,JUL10?UNK
     Route: 065
     Dates: start: 2005, end: 2008
  12. TENOFOVIR [Suspect]
     Active Substance: TENOFOVIR
     Dosage: 2005?UNK JUL10?UNK
     Route: 065
     Dates: start: 2005
  13. SAQUINAVIR [Suspect]
     Active Substance: SAQUINAVIR
     Indication: ANTIRETROVIRAL THERAPY
     Dosage: UNK
     Route: 065
     Dates: start: 201007
  14. RIBAVIRIN. [Suspect]
     Active Substance: RIBAVIRIN
     Indication: ANTIRETROVIRAL THERAPY
     Dosage: CAPS 2005?2005 2005?2008
     Route: 065
     Dates: start: 2006, end: 2008
  15. RIBAVIRIN. [Suspect]
     Active Substance: RIBAVIRIN
     Dosage: 1000 MG
     Route: 065
     Dates: start: 2005, end: 2006
  16. PEGINTRON [PEGINTERFERON ALFA?2B;RIBAVIRIN] [Suspect]
     Active Substance: PEGINTERFERON ALFA-2B\RIBAVIRIN
     Indication: PRODUCT USED FOR UNKNOWN INDICATION
     Dosage: UNK
     Route: 065
     Dates: start: 2005, end: 2006
  17. INDINAVIR SULFATE [Suspect]
     Active Substance: INDINAVIR SULFATE
     Indication: ANTIRETROVIRAL THERAPY
     Dosage: UNK
     Route: 065
     Dates: start: 2006
  18. PEGASYS [Suspect]
     Active Substance: PEGINTERFERON ALFA-2A
     Indication: PRODUCT USED FOR UNKNOWN INDICATION
     Dosage: UNK
     Route: 065
     Dates: start: 200804, end: 200805

REACTIONS (7)
  - Drug intolerance [Unknown]
  - Nausea [Unknown]
  - Hypertension [Unknown]
  - Hepatic cirrhosis [Unknown]
  - Drug resistance [Unknown]
  - Fatigue [Unknown]
  - Vomiting [Unknown]

NARRATIVE: CASE EVENT DATE: 2005
